FAERS Safety Report 19003587 (Version 1)
Quarter: 2021Q1

REPORT INFORMATION
  Report Type: Report from Study
  Country: US (occurrence: US)
  Receive Date: 20210312
  Receipt Date: 20210312
  Transmission Date: 20210420
  Serious: Yes (Other)
  Sender: FDA-Public Use
  Company Number: US-JNJFOC-20210318465

PATIENT

DRUGS (4)
  1. AVELUMAB [Suspect]
     Active Substance: AVELUMAB
     Indication: LEIOMYOSARCOMA
     Route: 065
  2. YONDELIS [Suspect]
     Active Substance: TRABECTEDIN
     Indication: LIPOSARCOMA
  3. AVELUMAB [Suspect]
     Active Substance: AVELUMAB
     Indication: LIPOSARCOMA
  4. YONDELIS [Suspect]
     Active Substance: TRABECTEDIN
     Indication: LEIOMYOSARCOMA
     Dosage: 1, 1.2 AND 1.5 MG/M2
     Route: 042

REACTIONS (12)
  - Gamma-glutamyltransferase increased [Unknown]
  - Ejection fraction decreased [Unknown]
  - Diarrhoea [Unknown]
  - Small intestinal obstruction [Unknown]
  - Fatigue [Unknown]
  - Alanine aminotransferase increased [Unknown]
  - Vascular device infection [Unknown]
  - Neutropenia [Unknown]
  - Nausea [Unknown]
  - Decreased appetite [Unknown]
  - Blood bilirubin increased [Unknown]
  - Infusion related reaction [Unknown]
